FAERS Safety Report 19248376 (Version 1)
Quarter: 2021Q2

REPORT INFORMATION
  Report Type: Spontaneous
  Country: FR (occurrence: FR)
  Receive Date: 20210512
  Receipt Date: 20210512
  Transmission Date: 20210717
  Serious: Yes (Hospitalization, Other)
  Sender: FDA-Public Use
  Company Number: FR-SA-2021SA145587

PATIENT
  Age: 61 Year
  Sex: Male
  Weight: 93 kg

DRUGS (5)
  1. TERALITHE [Interacting]
     Active Substance: LITHIUM CARBONATE
     Indication: BIPOLAR DISORDER
     Dosage: 1200 MG ONCE A DAY
     Route: 048
     Dates: start: 1998, end: 20210331
  2. ADENURIC [Concomitant]
     Active Substance: FEBUXOSTAT
     Dosage: UNK
  3. ESCITALOPRAM OXALATE. [Interacting]
     Active Substance: ESCITALOPRAM OXALATE
     Indication: DEPRESSION
     Dosage: 10 MG / DAY
     Route: 048
     Dates: start: 202103, end: 20210331
  4. COAPROVEL [Suspect]
     Active Substance: HYDROCHLOROTHIAZIDE\IRBESARTAN
     Indication: HYPERTENSION
     Dosage: 1 TABLET OF 300/25 MG EVERY DAY
     Route: 048
     Dates: end: 20210401
  5. ATORVASTATIN [ATORVASTATIN CALCIUM] [Concomitant]
     Active Substance: ATORVASTATIN CALCIUM
     Dosage: UNK
     Route: 048

REACTIONS (8)
  - Antipsychotic drug level increased [Recovered/Resolved]
  - Balance disorder [Recovered/Resolved]
  - Bradycardia [Recovered/Resolved]
  - Confusional state [Recovered/Resolved]
  - Dysarthria [Recovered/Resolved]
  - Amnesia [Recovered/Resolved]
  - Tremor [Recovered/Resolved]
  - Drug interaction [Unknown]

NARRATIVE: CASE EVENT DATE: 202103
